FAERS Safety Report 12209653 (Version 35)
Quarter: 2021Q3

REPORT INFORMATION
  Report Type: Other
  Country: CA (occurrence: CA)
  Receive Date: 20160325
  Receipt Date: 20210923
  Transmission Date: 20211014
  Serious: Yes (Other)
  Sender: FDA-Public Use
  Company Number: CA-ROCHE-1213265

PATIENT
  Age: 80 Year
  Sex: Female
  Weight: 65 kg

DRUGS (12)
  1. APO?FOLIC ACID [Concomitant]
     Active Substance: FOLIC ACID
     Indication: PRODUCT USED FOR UNKNOWN INDICATION
  2. CELEBREX [Concomitant]
     Active Substance: CELECOXIB
     Indication: PRODUCT USED FOR UNKNOWN INDICATION
  3. CRESTOR [Concomitant]
     Active Substance: ROSUVASTATIN CALCIUM
     Indication: PRODUCT USED FOR UNKNOWN INDICATION
  4. ELTROXIN [Concomitant]
     Active Substance: LEVOTHYROXINE
     Indication: PRODUCT USED FOR UNKNOWN INDICATION
  5. ACTEMRA [Suspect]
     Active Substance: TOCILIZUMAB
     Route: 042
     Dates: start: 20200807
  6. AMLODIPINE BESYLATE. [Concomitant]
     Active Substance: AMLODIPINE BESYLATE
     Indication: PRODUCT USED FOR UNKNOWN INDICATION
  7. JANUVIA [Concomitant]
     Active Substance: SITAGLIPTIN PHOSPHATE
     Indication: PRODUCT USED FOR UNKNOWN INDICATION
  8. RAMIPRIL. [Concomitant]
     Active Substance: RAMIPRIL
     Indication: PRODUCT USED FOR UNKNOWN INDICATION
  9. ACTEMRA [Suspect]
     Active Substance: TOCILIZUMAB
     Indication: RHEUMATOID ARTHRITIS
     Dosage: MOST RECENT DOSE WAS ADMINISTERED ON 08/SEP/2017.
     Route: 042
     Dates: start: 20121113, end: 20200707
  10. APO?GLYBURIDE [Concomitant]
     Active Substance: GLYBURIDE
     Indication: PRODUCT USED FOR UNKNOWN INDICATION
  11. GLICLAZIDE [Concomitant]
     Active Substance: GLICLAZIDE
     Indication: PRODUCT USED FOR UNKNOWN INDICATION
  12. ACTONEL [Concomitant]
     Active Substance: RISEDRONATE SODIUM

REACTIONS (22)
  - Blood pressure fluctuation [Unknown]
  - Arthropathy [Not Recovered/Not Resolved]
  - Blood pressure systolic increased [Unknown]
  - Blood pressure increased [Unknown]
  - Body temperature increased [Unknown]
  - Tibia fracture [Unknown]
  - Arthralgia [Recovering/Resolving]
  - Infusion related reaction [Unknown]
  - Influenza [Not Recovered/Not Resolved]
  - Nasopharyngitis [Unknown]
  - Joint swelling [Unknown]
  - Blood pressure systolic increased [Unknown]
  - Weight decreased [Unknown]
  - Weight increased [Unknown]
  - Arthralgia [Unknown]
  - Pruritus [Recovered/Resolved]
  - Pain [Not Recovered/Not Resolved]
  - Hypertension [Unknown]
  - Blood pressure fluctuation [Unknown]
  - Investigation abnormal [Recovering/Resolving]
  - Eye disorder [Unknown]
  - Hypokinesia [Unknown]

NARRATIVE: CASE EVENT DATE: 2013
